FAERS Safety Report 11871585 (Version 3)
Quarter: 2016Q1

REPORT INFORMATION
  Report Type: Spontaneous
  Country: CA (occurrence: CA)
  Receive Date: 20151228
  Receipt Date: 20160210
  Transmission Date: 20160526
  Serious: Yes (Disabling)
  Sender: FDA-Public Use
  Company Number: CA-PFIZER INC-2014035584

PATIENT
  Age: 13 Year
  Sex: Female
  Weight: 41 kg

DRUGS (7)
  1. SYMBICORT [Concomitant]
     Active Substance: BUDESONIDE\FORMOTEROL FUMARATE DIHYDRATE
     Indication: LUNG DISORDER
     Dosage: 200 (2 PUFFS), 2X/DAY
     Route: 055
     Dates: start: 2012
  2. SIROLIMUS. [Suspect]
     Active Substance: SIROLIMUS
     Indication: LYMPHANGIOMA
     Dosage: UNK
     Dates: start: 201311
  3. BACTRIM [Concomitant]
     Active Substance: SULFAMETHOXAZOLE\TRIMETHOPRIM
     Dosage: (MONDAY, WEDNESDAY, FRIDAY)/EVERY WEEK
  4. VITAMIN D [Concomitant]
     Active Substance: CHOLECALCIFEROL
     Dosage: 1000 IU, DAILY
  5. SEPTRA [Concomitant]
     Active Substance: SULFAMETHOXAZOLE\TRIMETHOPRIM
     Indication: PROPHYLAXIS
     Dosage: MONDAY, WEDNESDAY, FRIDAY
     Dates: start: 2012, end: 20160105
  6. SIROLIMUS. [Suspect]
     Active Substance: SIROLIMUS
     Dosage: 1 MG, 2X/DAY
     Route: 048
     Dates: start: 201212
  7. TUMS [Concomitant]
     Active Substance: CALCIUM CARBONATE
     Dosage: 1500 MG, 1X/DAY
     Route: 048

REACTIONS (3)
  - Deafness neurosensory [Not Recovered/Not Resolved]
  - Product use issue [Unknown]
  - Thrombocytopenia [Not Recovered/Not Resolved]

NARRATIVE: CASE EVENT DATE: 201501
